FAERS Safety Report 6829287-2 (Version None)
Quarter: 2010Q2

REPORT INFORMATION
  Report Type: 
  Country: None (occurrence: None)
  Receive Date: 20100511
  Receipt Date: 20100301
  Transmission Date: 20101027
  Serious: Yes (Other)
  Sender: FDA-Public Use
  Company Number: OMX-2010-00034

PATIENT

DRUGS (1)
  1. QUIXEL (FACTORI (FIBRINOGEN) (SOLUTION) [Suspect]
     Dates: start: 20100125

REACTIONS (1)
  - APPLICATION SITE REACTION [None]
